FAERS Safety Report 13388767 (Version 2)
Quarter: 2017Q2

REPORT INFORMATION
  Report Type: Spontaneous
  Country: SE (occurrence: SE)
  Receive Date: 20170330
  Receipt Date: 20170410
  Transmission Date: 20170830
  Serious: Yes (Other)
  Sender: FDA-Public Use
  Company Number: SE-SUNOVION-2017SUN001392

PATIENT

DRUGS (6)
  1. SEROQUEL [Concomitant]
     Active Substance: QUETIAPINE FUMARATE
  2. LATUDA [Suspect]
     Active Substance: LURASIDONE HYDROCHLORIDE
     Indication: SCHIZOAFFECTIVE DISORDER
     Dosage: 18.5 MG, QD
     Route: 048
     Dates: start: 2016, end: 20161201
  3. OLANZAPINE. [Concomitant]
     Active Substance: OLANZAPINE
  4. RISPERIDONE. [Concomitant]
     Active Substance: RISPERIDONE
  5. HALDOL [Concomitant]
     Active Substance: HALOPERIDOL
  6. QUETIAPINE. [Concomitant]
     Active Substance: QUETIAPINE

REACTIONS (13)
  - Suicidal ideation [Not Recovered/Not Resolved]
  - Fear of death [Not Recovered/Not Resolved]
  - Asthenia [Not Recovered/Not Resolved]
  - Muscle spasms [Not Recovered/Not Resolved]
  - Visual impairment [Not Recovered/Not Resolved]
  - Anger [Not Recovered/Not Resolved]
  - Dyskinesia [Not Recovered/Not Resolved]
  - Drug withdrawal syndrome [Not Recovered/Not Resolved]
  - Hypnopompic hallucination [Not Recovered/Not Resolved]
  - Hypnagogic hallucination [Not Recovered/Not Resolved]
  - Psychotic behaviour [Not Recovered/Not Resolved]
  - Sleep disorder [Not Recovered/Not Resolved]
  - Depression [Not Recovered/Not Resolved]

NARRATIVE: CASE EVENT DATE: 2016
